FAERS Safety Report 8535191-4 (Version None)
Quarter: 2012Q3

REPORT INFORMATION
  Report Type: 
  Country: None (occurrence: None)
  Receive Date: 20120724
  Receipt Date: 20120710
  Transmission Date: 20120928
  Serious: Yes (Other)
  Sender: FDA-Public Use
  Company Number: CHPA2012US015265

PATIENT
  Age: 17 Year
  Sex: Male

DRUGS (1)
  1. EXCEDRIN EXTRA STRENGTH TABLETS [Suspect]
     Indication: EAR PAIN
     Dosage: 2 DF, UNK
     Route: 048
     Dates: start: 20120709, end: 20120709

REACTIONS (6)
  - PHARYNGEAL OEDEMA [None]
  - URTICARIA [None]
  - OFF LABEL USE [None]
  - HYPERSENSITIVITY [None]
  - SWOLLEN TONGUE [None]
  - DYSPNOEA [None]
